FAERS Safety Report 13334073 (Version 1)
Quarter: 2017Q1

REPORT INFORMATION
  Report Type: Spontaneous
  Country: NO (occurrence: NO)
  Receive Date: 20170314
  Receipt Date: 20170314
  Transmission Date: 20170428
  Serious: Yes (Hospitalization)
  Sender: FDA-Public Use
  Company Number: NO-PFIZER INC-2017100844

PATIENT
  Sex: Male
  Weight: 3.9 kg

DRUGS (3)
  1. VENLAFAXINE HCL [Suspect]
     Active Substance: VENLAFAXINE HYDROCHLORIDE
     Indication: DEPRESSION
     Dosage: 360 MG (SINCE THE START OF THE PREGNANCY)
     Route: 064
  2. VENLAFAXINE HCL [Suspect]
     Active Substance: VENLAFAXINE HYDROCHLORIDE
     Dosage: 225 MG, 1X/DAY (STARTING THE WEEK BEFORE BIRTH)
     Route: 064
     Dates: start: 201702
  3. LAMOTRIGINE. [Concomitant]
     Active Substance: LAMOTRIGINE
     Dosage: 200 MG, 1X/DAY (THROUGHOUT PREGNANCY)
     Route: 064

REACTIONS (3)
  - Myoclonus [Recovered/Resolved]
  - Maternal exposure during pregnancy [Recovered/Resolved]
  - Meconium aspiration syndrome [Recovered/Resolved]

NARRATIVE: CASE EVENT DATE: 20170209
